FAERS Safety Report 16719432 (Version 3)
Quarter: 2019Q4

REPORT INFORMATION
  Report Type: Spontaneous
  Country: US (occurrence: US)
  Receive Date: 20190820
  Receipt Date: 20191001
  Transmission Date: 20200122
  Serious: No
  Sender: FDA-Public Use
  Company Number: PHEH2019US034147

PATIENT
  Sex: Female

DRUGS (1)
  1. AFINITOR [Suspect]
     Active Substance: EVEROLIMUS
     Indication: BREAST CANCER
     Dosage: 10 MG, QD (10MG QAM WITH FOOD)
     Route: 048
     Dates: start: 20190806

REACTIONS (3)
  - Rash [Not Recovered/Not Resolved]
  - Pneumonitis [Unknown]
  - Hypersensitivity [Unknown]
